FAERS Safety Report 24758812 (Version 1)
Quarter: 2024Q4

REPORT INFORMATION
  Report Type: Spontaneous
  Country: US (occurrence: US)
  Receive Date: 20241220
  Receipt Date: 20241220
  Transmission Date: 20250114
  Serious: Yes (Hospitalization)
  Sender: MYLAN
  Company Number: US-MYLANLABS-2024M1113162

PATIENT
  Age: 38 Year

DRUGS (9)
  1. DOXYCYCLINE [Suspect]
     Active Substance: DOXYCYCLINE
     Indication: Achromobacter infection
     Dosage: UNK
     Route: 065
  2. SULFAMETHOXAZOLE\TRIMETHOPRIM [Suspect]
     Active Substance: SULFAMETHOXAZOLE\TRIMETHOPRIM
     Indication: Achromobacter infection
     Dosage: UNK
     Route: 065
  3. LEVOFLOXACIN [Suspect]
     Active Substance: LEVOFLOXACIN
     Indication: Achromobacter infection
     Dosage: UNK
     Route: 065
  4. MINOCYCLINE [Suspect]
     Active Substance: MINOCYCLINE HYDROCHLORIDE
     Indication: Achromobacter infection
     Dosage: UNK
     Route: 065
  5. MEROPENEM [Suspect]
     Active Substance: MEROPENEM
     Indication: Achromobacter infection
     Dosage: UNK
     Route: 065
  6. CEFAZOLIN [Suspect]
     Active Substance: CEFAZOLIN
     Indication: Achromobacter infection
     Dosage: UNK
     Route: 065
  7. CEFEPIME [Suspect]
     Active Substance: CEFEPIME HYDROCHLORIDE
     Indication: Achromobacter infection
     Dosage: UNK
     Route: 065
  8. CEFTAZIDIME [Suspect]
     Active Substance: CEFTAZIDIME
     Indication: Achromobacter infection
     Dosage: UNK
     Route: 065
  9. TIMOLOL [Concomitant]
     Active Substance: TIMOLOL\TIMOLOL MALEATE
     Indication: Dermatitis
     Dosage: UNK
     Route: 061

REACTIONS (1)
  - Drug ineffective [Unknown]
